FAERS Safety Report 9685848 (Version 1)
Quarter: 2013Q4

REPORT INFORMATION
  Report Type: Spontaneous
  Country: DE (occurrence: DE)
  Receive Date: 20131113
  Receipt Date: 20131113
  Transmission Date: 20140711
  Serious: Yes (Life-Threatening)
  Sender: FDA-Public Use
  Company Number: DE-TEVA-443549GER

PATIENT
  Age: 62 Year
  Sex: Male
  Weight: 120 kg

DRUGS (10)
  1. CLOPIDOGREL [Suspect]
     Indication: CORONARY ARTERIAL STENT INSERTION
  2. SIMVASTATIN [Suspect]
     Indication: CORONARY ARTERY DISEASE
  3. BOTICANA UR-KORALLE [Suspect]
     Dates: start: 20130901
  4. ALLOPURINOL [Concomitant]
  5. ASS [Concomitant]
  6. AMLODIPIN [Concomitant]
  7. VALSARTAN [Concomitant]
  8. TORASEMID [Concomitant]
  9. BELOC ZOK [Concomitant]
  10. DOXAZOSIN [Concomitant]

REACTIONS (2)
  - Renal failure acute [Not Recovered/Not Resolved]
  - Subacute hepatic failure [Not Recovered/Not Resolved]
